FAERS Safety Report 4505507-4 (Version None)
Quarter: 2004Q4

REPORT INFORMATION
  Report Type: 
  Country: None (occurrence: None)
  Receive Date: 20041119
  Receipt Date: 20041109
  Transmission Date: 20050328
  Serious: Yes (Hospitalization)
  Sender: FDA-Public Use
  Company Number: US-ROCHE-385852

PATIENT
  Age: 40 Year
  Sex: Female
  Weight: 48.3 kg

DRUGS (7)
  1. CAPECITABINE [Suspect]
     Indication: BREAST CANCER
     Dosage: INTERMITTENT THERAPY - TWO WEEKS TREATMENT FOLLOWED BY ONE WEEK REST.
     Route: 048
     Dates: start: 20040601, end: 20040817
  2. TAXOTERE [Suspect]
     Indication: BREAST CANCER
     Route: 042
     Dates: start: 20040601, end: 20040802
  3. PAXIL [Concomitant]
     Indication: DEPRESSION
     Route: 048
     Dates: start: 20020615
  4. CITRUCEL [Concomitant]
     Indication: CONSTIPATION PROPHYLAXIS
     Dosage: 1/4 PACKET PER DAY.
     Route: 048
     Dates: start: 20040315
  5. PREVACID [Concomitant]
     Route: 048
     Dates: start: 20040802
  6. LACTOBACILLUS [Concomitant]
     Indication: INFECTION PROPHYLAXIS
     Dosage: ACIDOPHILUS.  GIVEN DAILY.
     Route: 048
     Dates: start: 20040315
  7. NYSTATIN [Concomitant]
     Indication: PROPHYLAXIS
     Route: 048
     Dates: start: 20040601, end: 20040831

REACTIONS (5)
  - CELLULITIS [None]
  - CLUBBING [None]
  - LYMPHOCYTE COUNT DECREASED [None]
  - NEUTROPHIL PERCENTAGE INCREASED [None]
  - PLATELET COUNT DECREASED [None]
